FAERS Safety Report 17236711 (Version 2)
Quarter: 2020Q1

REPORT INFORMATION
  Report Type: Spontaneous
  Country: US (occurrence: US)
  Receive Date: 20200106
  Receipt Date: 20200310
  Transmission Date: 20200409
  Serious: Yes (Death, Hospitalization, Other)
  Sender: FDA-Public Use
  Company Number: US-PFIZER INC-2019424681

PATIENT
  Age: 78 Year
  Sex: Female
  Weight: 79.37 kg

DRUGS (1)
  1. XALKORI [Suspect]
     Active Substance: CRIZOTINIB
     Indication: LUNG NEOPLASM MALIGNANT
     Dosage: 250 MG, 2X/DAY

REACTIONS (3)
  - Multiple organ dysfunction syndrome [Fatal]
  - Hypoxia [Fatal]
  - Cardiac failure congestive [Fatal]
